FAERS Safety Report 7014975-8 (Version None)
Quarter: 2010Q3

REPORT INFORMATION
  Report Type: 
  Country: None (occurrence: None)
  Receive Date: 20100927
  Receipt Date: 20100427
  Transmission Date: 20110219
  Serious: No
  Sender: FDA-Public Use
  Company Number: US-ASTRAZENECA-2010SE18807

PATIENT
  Age: 81 Year
  Sex: Male
  Weight: 89.4 kg

DRUGS (11)
  1. ARIMIDEX [Suspect]
     Indication: BREAST CANCER
     Route: 048
     Dates: start: 20070101
  2. LOTREL [Concomitant]
  3. SYNTHROID [Concomitant]
  4. NORFLEX [Concomitant]
  5. DEMADEX [Concomitant]
  6. FLOMAX [Concomitant]
  7. ZOCOR [Concomitant]
  8. DIOVAN [Concomitant]
  9. CO-Q 10 [Concomitant]
  10. RESCULA OPTHALMIC GTTS [Concomitant]
  11. COUMADIN [Concomitant]

REACTIONS (3)
  - HYPOAESTHESIA [None]
  - PRURITUS [None]
  - RASH [None]
